FAERS Safety Report 18692325 (Version 1)
Quarter: 2021Q1

REPORT INFORMATION
  Report Type: Spontaneous
  Country: US (occurrence: US)
  Receive Date: 20210103
  Receipt Date: 20210103
  Transmission Date: 20210419
  Serious: Yes (Disabling)
  Sender: FDA-Public Use
  Company Number: US-TEVA-2021-US-1865854

PATIENT
  Age: 71 Year
  Sex: Female

DRUGS (18)
  1. ZOFRAN [Concomitant]
     Active Substance: ONDANSETRON HYDROCHLORIDE
     Route: 042
     Dates: start: 20140926
  2. DOCETAXEL ACCORD [Suspect]
     Active Substance: DOCETAXEL
     Indication: BREAST CANCER FEMALE
     Dosage: DOSAGE: 154MG, NUMBER OF CYCLES: 04, FREQUENCY: EVERY TWO WEEKS
     Route: 042
     Dates: start: 20140919, end: 20141120
  3. CARBOPLATIN. [Suspect]
     Active Substance: CARBOPLATIN
     Indication: BREAST CANCER FEMALE
     Dosage: CARBOPLATIN 600MG 10MG/M160M1MDV, FREQUENCY: EVERY 3 WEEKS
     Route: 042
     Dates: start: 20141212, end: 20150911
  4. TOPROL XL [Concomitant]
     Active Substance: METOPROLOL SUCCINATE
     Dates: start: 20100622
  5. PERCOCET [Concomitant]
     Active Substance: ACETAMINOPHEN\OXYCODONE HYDROCHLORIDE
     Dosage: DOSE? 5MG?325MG
     Dates: start: 20140822
  6. NEULASTA [Concomitant]
     Active Substance: PEGFILGRASTIM
     Indication: BREAST CANCER FEMALE
     Dosage: DOSAGE: 6MG, FREQUENCY: EVERY 3 WEEKS
     Route: 058
     Dates: start: 20140926, end: 20141124
  7. ZOCOR [Concomitant]
     Active Substance: SIMVASTATIN
     Dosage: 20 MILLIGRAM DAILY;
     Route: 048
     Dates: start: 2004
  8. PROTONIX [Concomitant]
     Active Substance: PANTOPRAZOLE SODIUM
     Dates: start: 2008
  9. NAPROXEN. [Concomitant]
     Active Substance: NAPROXEN
     Dates: start: 20140822
  10. PERCOCET [Concomitant]
     Active Substance: ACETAMINOPHEN\OXYCODONE HYDROCHLORIDE
     Dosage: DOSE? 5MG?325MG
     Dates: start: 20140822
  11. HERCEPTIN [Suspect]
     Active Substance: TRASTUZUMAB
     Indication: BREAST CANCER FEMALE
     Dosage: HERCEPTIN 440MG LYOPHILIZED POWDER W/DILUENT MDV, DOSAGE: 6MG/KG, FREQUENCY: EVERY 3 WEEKS
     Route: 042
     Dates: start: 20141212, end: 20150911
  12. ALOXI [Concomitant]
     Active Substance: PALONOSETRON HYDROCHLORIDE
     Route: 042
     Dates: start: 20141121
  13. DECADRON [Concomitant]
     Active Substance: DEXAMETHASONE
     Route: 042
     Dates: start: 20141121
  14. EMEND [Concomitant]
     Active Substance: APREPITANT
     Route: 042
     Dates: start: 20141121
  15. METOPROLOL SUCCINATE. [Concomitant]
     Active Substance: METOPROLOL SUCCINATE
     Dosage: 50 MILLIGRAM DAILY; EXTENDED RELEASE 24 HR
     Route: 048
     Dates: start: 20140822
  16. VITAMIN C [Concomitant]
     Active Substance: ASCORBIC ACID
     Dosage: 500 MILLIGRAM DAILY;
     Route: 048
     Dates: start: 20140919
  17. DOCETAXEL SAGENT [Suspect]
     Active Substance: DOCETAXEL
     Indication: BREAST CANCER FEMALE
     Dosage: DOSAGE: 154 MG, NUMBER OF CYCLES: 04, FREQUENCY: EVERY TWO WEEKS
     Route: 042
     Dates: start: 20140919, end: 20141120
  18. ATIVAN [Concomitant]
     Active Substance: LORAZEPAM
     Dosage: ROUTE: IVP
     Route: 042
     Dates: start: 20140919

REACTIONS (17)
  - Alopecia areata [Not Recovered/Not Resolved]
  - Madarosis [Not Recovered/Not Resolved]
  - Joint swelling [Recovering/Resolving]
  - Lymphoedema [Recovering/Resolving]
  - Paraesthesia [Unknown]
  - Nausea [Recovered/Resolved]
  - Rhinorrhoea [Recovering/Resolving]
  - Rash [Recovering/Resolving]
  - Pruritus [Unknown]
  - Diarrhoea [Recovered/Resolved]
  - Arthralgia [Not Recovered/Not Resolved]
  - Constipation [Recovered/Resolved]
  - Abdominal pain [Recovered/Resolved]
  - Fatigue [Recovered/Resolved]
  - Oral pain [Recovered/Resolved]
  - Oedema peripheral [Recovering/Resolving]
  - Muscular weakness [Unknown]

NARRATIVE: CASE EVENT DATE: 201409
